APPROVED DRUG PRODUCT: AMINOPHYLLINE IN SODIUM CHLORIDE 0.45% IN PLASTIC CONTAINER
Active Ingredient: AMINOPHYLLINE
Strength: 200MG/100ML
Dosage Form/Route: INJECTABLE;INJECTION
Application: N018924 | Product #002
Applicant: HOSPIRA INC
Approved: Dec 12, 1984 | RLD: No | RS: No | Type: DISCN